FAERS Safety Report 13937627 (Version 2)
Quarter: 2017Q3

REPORT INFORMATION
  Report Type: Spontaneous
  Country: GB (occurrence: GB)
  Receive Date: 20170905
  Receipt Date: 20170925
  Transmission Date: 20171127
  Serious: Yes (Hospitalization)
  Sender: FDA-Public Use
  Company Number: GB-PFIZER INC-2017379286

PATIENT
  Age: 34 Year
  Sex: Female
  Weight: 23 kg

DRUGS (2)
  1. MISOPROSTOL. [Suspect]
     Active Substance: MISOPROSTOL
     Indication: ABORTION INDUCED
     Dosage: 800 UG, SINGLE
  2. MIFEPRISTONE LINEPHARMA [Suspect]
     Active Substance: MIFEPRISTONE
     Indication: ABORTION INDUCED
     Dosage: 200 MG, SINGLE
     Route: 048
     Dates: start: 20170704, end: 20170704

REACTIONS (3)
  - Haemorrhage [Unknown]
  - Product use in unapproved indication [Unknown]
  - Retained products of conception [Unknown]

NARRATIVE: CASE EVENT DATE: 20170718
